FAERS Safety Report 19794224 (Version 1)
Quarter: 2021Q3

REPORT INFORMATION
  Report Type: Spontaneous
  Country: FR (occurrence: FR)
  Receive Date: 20210907
  Receipt Date: 20210907
  Transmission Date: 20211014
  Serious: Yes (Other)
  Sender: FDA-Public Use
  Company Number: FR-AUROBINDO-AUR-APL-2021-037154

PATIENT
  Age: 59 Year
  Sex: Male
  Weight: 29 kg

DRUGS (2)
  1. FLUCONAZOLE CAPSULE, HARD 200MG [Suspect]
     Active Substance: FLUCONAZOLE
     Dosage: 800 MILLIGRAM, ONCE A DAY
     Route: 048
     Dates: start: 20210812, end: 20210813
  2. FLUCONAZOLE CAPSULE, HARD 200MG [Suspect]
     Active Substance: FLUCONAZOLE
     Indication: CRYPTOCOCCOSIS
     Dosage: 400 MILLIGRAM, ONCE A DAY
     Route: 048
     Dates: start: 20210728, end: 20210811

REACTIONS (3)
  - Product prescribing error [Recovered/Resolved]
  - Hepatocellular injury [Recovered/Resolved]
  - Drug level above therapeutic [Recovered/Resolved]

NARRATIVE: CASE EVENT DATE: 20210812
